FAERS Safety Report 18145124 (Version 2)
Quarter: 2020Q3

REPORT INFORMATION
  Report Type: Spontaneous
  Country: US (occurrence: US)
  Receive Date: 20200813
  Receipt Date: 20200901
  Transmission Date: 20201103
  Serious: No
  Sender: FDA-Public Use
  Company Number: US-PFIZER INC-2020313483

PATIENT
  Age: 58 Year
  Sex: Female

DRUGS (8)
  1. INDERAL LA [Suspect]
     Active Substance: PROPRANOLOL HYDROCHLORIDE
     Indication: HYPERTENSION
     Dosage: UNK
     Route: 048
     Dates: start: 1990, end: 201908
  2. TOPROL XL [Suspect]
     Active Substance: METOPROLOL SUCCINATE
     Indication: BLOOD CHOLESTEROL INCREASED
     Dosage: 50MG, THEN DECREASED TO 25MG IN MAR?2020
     Route: 048
     Dates: start: 202003, end: 20200624
  3. INDERAL LA [Suspect]
     Active Substance: PROPRANOLOL HYDROCHLORIDE
     Indication: BLOOD CHOLESTEROL INCREASED
  4. PROPANOLOL HCL [Suspect]
     Active Substance: PROPRANOLOL HYDROCHLORIDE
     Indication: HYPERTENSION
     Dosage: 60 MG, DAILY
     Route: 048
     Dates: start: 20200624, end: 20200717
  5. PROPANOLOL HCL [Suspect]
     Active Substance: PROPRANOLOL HYDROCHLORIDE
     Indication: BLOOD CHOLESTEROL INCREASED
     Dosage: 20 MG, 2X/DAY
  6. PROPANOLOL HCL [Suspect]
     Active Substance: PROPRANOLOL HYDROCHLORIDE
     Dosage: 5 MG, 1X/DAY (IN THE MORNING)
  7. PROPANOLOL HCL [Suspect]
     Active Substance: PROPRANOLOL HYDROCHLORIDE
     Dosage: 10 MG, 2X/DAY
     Dates: start: 20200725
  8. TOPROL XL [Suspect]
     Active Substance: METOPROLOL SUCCINATE
     Indication: HYPERTENSION
     Dosage: 50MG, THEN DECREASED TO 25MG IN MAR?2020
     Route: 048
     Dates: start: 201908, end: 202003

REACTIONS (7)
  - Hypotension [Recovered/Resolved]
  - Muscular weakness [Recovered/Resolved]
  - Dizziness [Recovered/Resolved]
  - Obstructive airways disorder [Recovered/Resolved]
  - Asthenia [Not Recovered/Not Resolved]
  - Insomnia [Not Recovered/Not Resolved]
  - Fatigue [Not Recovered/Not Resolved]

NARRATIVE: CASE EVENT DATE: 201908
